FAERS Safety Report 7911111-8 (Version None)
Quarter: 2011Q4

REPORT INFORMATION
  Report Type: 
  Country: None (occurrence: None)
  Receive Date: 20111109
  Receipt Date: 20111024
  Transmission Date: 20120403
  Serious: Yes (Hospitalization, Disabling, Other)
  Sender: FDA-Public Use
  Company Number: 1000025271

PATIENT
  Age: 70 Year
  Sex: Female
  Weight: 60 kg

DRUGS (2)
  1. RAMIPRIL (RAMIPRIL) (CAPSULES) (RAMIPRIL) [Concomitant]
  2. ESCITALOPRAM [Suspect]
     Dosage: 10 MG (10 MG,1 IN 1 D),ORAL
     Route: 048
     Dates: start: 20100101

REACTIONS (4)
  - DIZZINESS [None]
  - PROGRESSIVE SUPRANUCLEAR PALSY [None]
  - FALL [None]
  - ELECTROCARDIOGRAM QT PROLONGED [None]
